FAERS Safety Report 11075674 (Version 2)
Quarter: 2015Q2

REPORT INFORMATION
  Report Type: Report from Study
  Country: BR (occurrence: BR)
  Receive Date: 20150429
  Receipt Date: 20150511
  Transmission Date: 20150821
  Serious: Yes (Other)
  Sender: FDA-Public Use
  Company Number: PHHY2015BR046732

PATIENT
  Sex: Female
  Weight: 75 kg

DRUGS (4)
  1. PURAN [Concomitant]
     Active Substance: LEVOTHYROXINE SODIUM
     Dosage: 100 UG (1 TABLET), QD
     Dates: start: 201410
  2. PURAN [Concomitant]
     Active Substance: LEVOTHYROXINE SODIUM
     Dosage: 125 UG (1 TABLET AT FASTING CONDITION), QD
     Route: 048
     Dates: start: 201501
  3. GILENYA [Suspect]
     Active Substance: FINGOLIMOD HYDROCHLORIDE
     Indication: MULTIPLE SCLEROSIS
     Dosage: 0.5 MG, QD
     Route: 048
     Dates: start: 20140322
  4. PURAN [Concomitant]
     Active Substance: LEVOTHYROXINE SODIUM
     Indication: THYROID NEOPLASM
     Dosage: 75 UG (1 TABLET), QD
     Route: 048
     Dates: start: 20140716

REACTIONS (1)
  - Central nervous system lesion [Unknown]
